FAERS Safety Report 9464612 (Version 2)
Quarter: 2013Q3

REPORT INFORMATION
  Report Type: Report from Study
  Country: AR (occurrence: AR)
  Receive Date: 20130819
  Receipt Date: 20130826
  Transmission Date: 20140515
  Serious: Yes (Hospitalization, Other)
  Sender: FDA-Public Use
  Company Number: AR-ABBOTT-13P-007-1132494-00

PATIENT
  Age: 40 Year
  Sex: Female

DRUGS (1)
  1. HUMIRA [Suspect]
     Indication: RHEUMATOID ARTHRITIS
     Route: 058
     Dates: start: 20120912

REACTIONS (5)
  - Uterine disorder [Recovering/Resolving]
  - Ovarian disorder [Recovering/Resolving]
  - Fallopian tube disorder [Recovering/Resolving]
  - Pyrexia [Recovering/Resolving]
  - Hospitalisation [Recovering/Resolving]
